FAERS Safety Report 4935773-2 (Version None)
Quarter: 2006Q1

REPORT INFORMATION
  Report Type: 
  Country: None (occurrence: None)
  Receive Date: 20060307
  Receipt Date: 20051206
  Transmission Date: 20060701
  Serious: Yes (Other)
  Sender: FDA-Public Use
  Company Number: US-GLAXOSMITHKLINE-A0584902A

PATIENT
  Sex: Female
  Weight: 72.7 kg

DRUGS (4)
  1. REQUIP [Suspect]
     Indication: RESTLESS LEGS SYNDROME
     Dosage: .5MG UNKNOWN
     Route: 048
     Dates: end: 20051109
  2. CYMBALTA [Concomitant]
     Indication: FATIGUE
     Dosage: 30MG PER DAY
     Route: 048
     Dates: start: 20051005
  3. FROVA [Concomitant]
     Indication: MIGRAINE
     Route: 048
  4. TRAMADOL HCL [Concomitant]
     Indication: PAIN
     Dosage: 50MG PER DAY
     Route: 048

REACTIONS (1)
  - HALLUCINATION, VISUAL [None]
